FAERS Safety Report 4729095-2 (Version None)
Quarter: 2005Q3

REPORT INFORMATION
  Report Type: 
  Country: None (occurrence: None)
  Receive Date: 20050729
  Receipt Date: 20050405
  Transmission Date: 20060218
  Serious: No
  Sender: FDA-Public Use
  Company Number: US-GLAXOSMITHKLINE-A0553001A

PATIENT
  Age: 38 Year
  Sex: Female
  Weight: 90.9 kg

DRUGS (2)
  1. IMITREX [Suspect]
     Dosage: 50MG UNKNOWN
     Route: 048
     Dates: start: 20040301, end: 20040501
  2. WELLBUTRIN SR [Concomitant]
     Indication: DRUG USE FOR UNKNOWN INDICATION
     Dosage: 150MG VARIABLE DOSE
     Route: 048
     Dates: start: 20040120

REACTIONS (3)
  - ASTHENIA [None]
  - CHEST PAIN [None]
  - HYPOAESTHESIA [None]
